FAERS Safety Report 6870159-5 (Version None)
Quarter: 2010Q3

REPORT INFORMATION
  Report Type: 
  Country: None (occurrence: None)
  Receive Date: 20100713
  Receipt Date: 20100629
  Transmission Date: 20110219
  Serious: Yes (Death)
  Sender: FDA-Public Use
  Company Number: OMX-2010-00043

PATIENT
  Age: 70 Year
  Sex: Male

DRUGS (4)
  1. EVICEL [Suspect]
     Indication: FISTULA
     Dosage: QUANTITY USED '5CC'
  2. ROCEPHIN [Concomitant]
  3. PROPOFOL [Concomitant]
  4. HEPARIN [Concomitant]

REACTIONS (8)
  - BRADYCARDIA [None]
  - CARDIAC ARREST [None]
  - CARDIAC FAILURE CONGESTIVE [None]
  - HYPOTENSION [None]
  - PNEUMONIA [None]
  - POST PROCEDURAL COMPLICATION [None]
  - PULMONARY HYPERTENSION [None]
  - UNRESPONSIVE TO STIMULI [None]
